FAERS Safety Report 17652749 (Version 2)
Quarter: 2020Q2

REPORT INFORMATION
  Report Type: Report from Study
  Country: AU (occurrence: AU)
  Receive Date: 20200409
  Receipt Date: 20200512
  Transmission Date: 20200713
  Serious: Yes (Hospitalization, Other)
  Sender: FDA-Public Use
  Company Number: AU-NOVOPROD-722494

PATIENT
  Age: 24 Year
  Sex: Female
  Weight: 72.4 kg

DRUGS (4)
  1. NOVORAPID [Suspect]
     Active Substance: INSULIN ASPART
     Dosage: UNK(DOSE DECREASED)
     Route: 058
  2. TOUJEO [Concomitant]
     Active Substance: INSULIN GLARGINE
     Indication: TYPE 1 DIABETES MELLITUS
     Dosage: 10 UNITS AT NIGHT
     Route: 058
  3. NOVORAPID [Suspect]
     Active Substance: INSULIN ASPART
     Dosage: UNK(CORRECTING WITH EXTRA DOSES)
     Route: 058
  4. NOVORAPID [Suspect]
     Active Substance: INSULIN ASPART
     Indication: TYPE 1 DIABETES MELLITUS
     Dosage: 6 IU, TID (BREAKFAST LUNCH AND DINNER)
     Route: 058

REACTIONS (5)
  - Diabetes mellitus inadequate control [Unknown]
  - Diabetic ketoacidosis [Unknown]
  - Hypoglycaemia [Unknown]
  - Hypoglycaemia [Recovering/Resolving]
  - Hypoglycaemia unawareness [Unknown]

NARRATIVE: CASE EVENT DATE: 20200331
